FAERS Safety Report 5323381-3 (Version None)
Quarter: 2007Q2

REPORT INFORMATION
  Report Type: 
  Country: None (occurrence: None)
  Receive Date: 20070514
  Receipt Date: 20070507
  Transmission Date: 20071010
  Serious: No
  Sender: FDA-Public Use
  Company Number: PHRM2007FR01324

PATIENT
  Age: 58 Year
  Sex: Male
  Weight: 100 kg

DRUGS (2)
  1. EXJADE [Suspect]
     Indication: IRON OVERLOAD
     Dosage: UNK, UNK
     Route: 048
     Dates: start: 20070201
  2. RED BLOOD CELLS [Concomitant]
     Indication: MYELODYSPLASTIC SYNDROME

REACTIONS (3)
  - DIARRHOEA [None]
  - RENAL COLIC [None]
  - URETERIC DILATATION [None]
